FAERS Safety Report 9849394 (Version 1)
Quarter: 2013Q4

REPORT INFORMATION
  Report Type: Spontaneous
  Country: US (occurrence: None)
  Receive Date: 20131226
  Receipt Date: 20131226
  Transmission Date: 20140711
  Serious: Yes (Other)
  Sender: FDA-Public Use
  Company Number: PHEH2012US017988

PATIENT
  Sex: 0

DRUGS (2)
  1. AFINITOR (RAD) UNKNOWN [Suspect]
  2. LISINOPRIL (LISINOPRIL) [Concomitant]

REACTIONS (1)
  - Angioedema [None]
